FAERS Safety Report 6703382-0 (Version None)
Quarter: 2010Q2

REPORT INFORMATION
  Report Type: 
  Country: None (occurrence: None)
  Receive Date: 20100430
  Receipt Date: 20100420
  Transmission Date: 20101027
  Serious: Yes (Death)
  Sender: FDA-Public Use
  Company Number: US-JNJFOC-20100407164

PATIENT
  Age: 61 Year
  Sex: Female
  Weight: 110.22 kg

DRUGS (7)
  1. FENTANYL [Suspect]
     Indication: DRUG USE FOR UNKNOWN INDICATION
     Route: 062
  2. VENLAFAXINE [Suspect]
     Indication: DRUG USE FOR UNKNOWN INDICATION
  3. AMITRIPTYLINE [Suspect]
     Indication: DRUG USE FOR UNKNOWN INDICATION
  4. GABAPENTIN [Suspect]
     Indication: DRUG USE FOR UNKNOWN INDICATION
  5. LOVASTATIN [Concomitant]
  6. VICODIN [Concomitant]
  7. DICYCLOMINE [Concomitant]

REACTIONS (2)
  - DRUG TOXICITY [None]
  - WRONG TECHNIQUE IN DRUG USAGE PROCESS [None]
